FAERS Safety Report 5040116-2 (Version None)
Quarter: 2006Q2

REPORT INFORMATION
  Report Type: 
  Country: None (occurrence: None)
  Receive Date: 20060601
  Receipt Date: 20060112
  Transmission Date: 20061013
  Serious: No
  Sender: FDA-Public Use
  Company Number: 2006PV006976

PATIENT
  Age: 65 Year
  Sex: Female
  Weight: 87.9978 kg

DRUGS (3)
  1. BYETTA [Suspect]
     Indication: DIABETES MELLITUS NON-INSULIN-DEPENDENT
     Dosage: 5 MCG; BID; SC
     Route: 058
     Dates: start: 20051209
  2. ACTOS [Concomitant]
  3. METFORMIN [Concomitant]

REACTIONS (6)
  - ASTHENIA [None]
  - BRONCHITIS [None]
  - COUGH [None]
  - NASAL DISCOMFORT [None]
  - SINUSITIS [None]
  - WEIGHT DECREASED [None]
